FAERS Safety Report 18102457 (Version 2)
Quarter: 2020Q4

REPORT INFORMATION
  Report Type: Spontaneous
  Country: US (occurrence: US)
  Receive Date: 20200803
  Receipt Date: 20201031
  Transmission Date: 20210113
  Serious: No
  Sender: FDA-Public Use
  Company Number: US-AUROBINDO-AUR-APL-2020-021859

PATIENT
  Sex: Female

DRUGS (4)
  1. LORATADINE 10 MG  ORALLY DISINTEGRATING TABLETS USP (OTC) [Suspect]
     Active Substance: LORATADINE
     Indication: LACRIMATION INCREASED
  2. LORATADINE 10 MG  ORALLY DISINTEGRATING TABLETS USP (OTC) [Suspect]
     Active Substance: LORATADINE
     Indication: SEASONAL ALLERGY
     Dosage: 1 DOSAGE FORM, ONCE A DAY (AT NIGHT 07:30)
     Route: 065
  3. LORATADINE 10 MG  ORALLY DISINTEGRATING TABLETS USP (OTC) [Suspect]
     Active Substance: LORATADINE
     Indication: RHINORRHOEA
  4. LORATADINE 10 MG  ORALLY DISINTEGRATING TABLETS USP (OTC) [Suspect]
     Active Substance: LORATADINE
     Indication: OROPHARYNGEAL DISCOMFORT

REACTIONS (3)
  - Oropharyngeal discomfort [Not Recovered/Not Resolved]
  - Therapeutic product effect incomplete [Unknown]
  - Sneezing [Not Recovered/Not Resolved]
